FAERS Safety Report 7741162-8 (Version None)
Quarter: 2011Q3

REPORT INFORMATION
  Report Type: 
  Country: None (occurrence: None)
  Receive Date: 20110909
  Receipt Date: 20110902
  Transmission Date: 20111222
  Serious: Yes (Death)
  Sender: FDA-Public Use
  Company Number: JP-AMGEN-JPNCT2011037513

PATIENT
  Age: 64 Year
  Sex: Male
  Weight: 70 kg

DRUGS (17)
  1. DIOVAN [Concomitant]
     Dosage: UNK
     Route: 048
  2. OXALIPLATIN [Suspect]
     Indication: COLORECTAL CANCER
     Route: 041
     Dates: start: 20110203, end: 20110526
  3. LEUCOVORIN CALCIUM [Concomitant]
     Indication: COLORECTAL CANCER
     Dosage: 125 MG, Q2WK
     Route: 041
     Dates: start: 20100909, end: 20110220
  4. ANTIHISTAMINES [Concomitant]
     Indication: PROPHYLAXIS
     Dosage: UNK
     Route: 065
  5. HERBALIFE PRODUCTS [Concomitant]
     Dosage: UNK
     Route: 048
  6. EMEND [Concomitant]
     Dosage: UNK
     Route: 048
  7. EMEND [Concomitant]
     Route: 048
     Dates: end: 20110526
  8. IRINOTECAN HCL [Concomitant]
     Indication: COLORECTAL CANCER
     Dosage: 120 MG, Q2WK
     Route: 041
     Dates: start: 20100909, end: 20110120
  9. FLUOROURACIL [Concomitant]
     Indication: COLORECTAL CANCER
     Dosage: 500 MG, Q2WK
     Route: 040
     Dates: start: 20100909, end: 20110120
  10. JUZENTAIHOTO [Concomitant]
     Dosage: UNK
     Route: 048
  11. FLUOROURACIL [Concomitant]
     Dosage: 750 MG, Q2WK
     Route: 041
     Dates: start: 20100909, end: 20110120
  12. CORTICOSTEROIDS [Concomitant]
     Indication: PROPHYLAXIS
     Dosage: UNK
     Route: 065
  13. PANITUMUMAB [Suspect]
     Indication: COLORECTAL CANCER
     Dosage: 6 MG/KG, Q2WK
     Route: 041
     Dates: start: 20100909, end: 20110526
  14. LEUCOVORIN CALCIUM [Concomitant]
     Route: 041
     Dates: start: 20110203, end: 20110526
  15. FLUOROURACIL [Concomitant]
     Route: 040
     Dates: start: 20110203, end: 20110526
  16. FLUOROURACIL [Concomitant]
     Route: 041
     Dates: start: 20110203, end: 20110526
  17. FLIVAS [Concomitant]
     Indication: BENIGN PROSTATIC HYPERPLASIA
     Dosage: UNK
     Route: 048

REACTIONS (4)
  - DERMATITIS ACNEIFORM [None]
  - STOMATITIS [None]
  - INTERSTITIAL LUNG DISEASE [None]
  - DRY SKIN [None]
